FAERS Safety Report 11884663 (Version 1)
Quarter: 2016Q1

REPORT INFORMATION
  Report Type: Spontaneous
  Country: IR (occurrence: IR)
  Receive Date: 20160104
  Receipt Date: 20160104
  Transmission Date: 20160526
  Serious: Yes (Hospitalization, Other)
  Sender: FDA-Public Use
  Company Number: IR-ALKEM-001411

PATIENT
  Age: 26 Year
  Sex: Female

DRUGS (1)
  1. LAMOTRIGINE. [Suspect]
     Active Substance: LAMOTRIGINE
     Dosage: 40 G OF LAMOTRIGINE (200 MG TABLETS)

REACTIONS (26)
  - Nystagmus [Recovered/Resolved]
  - Hypertonia [Recovered/Resolved]
  - Somnolence [Recovered/Resolved]
  - Menorrhagia [Recovered/Resolved]
  - Suicide attempt [Unknown]
  - Dehydration [Recovered/Resolved]
  - Vomiting [Recovered/Resolved]
  - Vision blurred [Recovered/Resolved]
  - Hyperhidrosis [Recovered/Resolved]
  - Abdominal pain [Recovered/Resolved]
  - Coma [Recovered/Resolved]
  - Mental disorder [Recovered/Resolved]
  - Dizziness [Recovered/Resolved]
  - Sinus tachycardia [Recovered/Resolved]
  - Lethargy [Recovered/Resolved]
  - Dysarthria [Recovered/Resolved]
  - Intentional overdose [Unknown]
  - Diplopia [Recovered/Resolved]
  - Hypokalaemia [Recovered/Resolved]
  - Generalised tonic-clonic seizure [Recovered/Resolved]
  - Ataxia [Recovered/Resolved]
  - Haemoglobin decreased [Recovered/Resolved]
  - Agitation [Recovered/Resolved]
  - Tachypnoea [Recovered/Resolved]
  - Headache [Recovered/Resolved]
  - Vertigo [Recovered/Resolved]
